FAERS Safety Report 12442886 (Version 3)
Quarter: 2016Q3

REPORT INFORMATION
  Report Type: Report from Study
  Country: US (occurrence: US)
  Receive Date: 20160607
  Receipt Date: 20160804
  Transmission Date: 20161109
  Serious: Yes (Other)
  Sender: FDA-Public Use
  Company Number: US-PFIZER INC-2016281085

PATIENT
  Age: 60 Year
  Sex: Male

DRUGS (1)
  1. PHENYTOIN. [Suspect]
     Active Substance: PHENYTOIN
     Indication: STATUS EPILEPTICUS
     Dosage: 500 MG, (RATE LESS THAN 100 MG/MIN)
     Route: 042

REACTIONS (4)
  - Incorrect drug administration rate [Unknown]
  - Hypotension [Unknown]
  - Apnoea [Unknown]
  - Cardiac arrest [Unknown]
